FAERS Safety Report 7362891 (Version 2)
Quarter: 2013Q2

REPORT INFORMATION
  Report Type: Spontaneous
  Country: US (occurrence: US)
  Receive Date: 20100422
  Receipt Date: 20130408
  Transmission Date: 20140414
  Serious: No
  Sender: FDA-Public Use
  Company Number: US-ASTRAZENECA-2009UW06209

PATIENT
  Sex: Female

DRUGS (6)
  1. METOPROLOL [Suspect]
     Indication: HYPERTENSION
     Dosage: TOPROL XL
     Route: 048
     Dates: start: 2007
  2. METOPROLOL [Suspect]
     Indication: HEART RATE INCREASED
     Dosage: TOPROL XL
     Route: 048
     Dates: start: 2007
  3. METOPROLOL [Suspect]
     Indication: PALPITATIONS
     Dosage: TOPROL XL
     Route: 048
     Dates: start: 2007
  4. METOPROLOL [Suspect]
     Indication: HYPERTENSION
     Dosage: GENERIC FORM OF TOPROL XL
  5. METOPROLOL [Suspect]
     Indication: HEART RATE INCREASED
     Dosage: GENERIC FORM OF TOPROL XL
  6. METOPROLOL [Suspect]
     Indication: PALPITATIONS
     Dosage: GENERIC FORM OF TOPROL XL

REACTIONS (4)
  - Blood pressure increased [Unknown]
  - Pain in extremity [Unknown]
  - Palpitations [Unknown]
  - Drug ineffective [Unknown]
